FAERS Safety Report 8357540-2 (Version None)
Quarter: 2012Q2

REPORT INFORMATION
  Report Type: 
  Country: None (occurrence: None)
  Receive Date: 20120514
  Receipt Date: 20120504
  Transmission Date: 20120825
  Serious: Yes (Hospitalization)
  Sender: FDA-Public Use
  Company Number: US-ACTELION-A-NJ2012-62250

PATIENT

DRUGS (2)
  1. COUMADIN [Concomitant]
  2. TRACLEER [Suspect]
     Indication: PULMONARY ARTERIAL HYPERTENSION
     Dosage: UNK
     Route: 048
     Dates: start: 20060807

REACTIONS (5)
  - INTRA-ABDOMINAL HAEMORRHAGE [None]
  - FALL [None]
  - NERVE COMPRESSION [None]
  - LIMB INJURY [None]
  - INTRA-ABDOMINAL HAEMATOMA [None]
